FAERS Safety Report 8016654-7 (Version None)
Quarter: 2012Q1

REPORT INFORMATION
  Report Type: 
  Country: None (occurrence: None)
  Receive Date: 20120102
  Receipt Date: 20111222
  Transmission Date: 20120608
  Serious: Yes (Disabling)
  Sender: FDA-Public Use
  Company Number: JP-BRISTOL-MYERS SQUIBB COMPANY-16317521

PATIENT
  Age: 59 Year
  Sex: Male

DRUGS (5)
  1. CYCLOPHOSPHAMIDE [Concomitant]
     Dosage: CYCLOPHOSPHAMIDE HYDRATE IV DROP
     Route: 042
     Dates: start: 20111212, end: 20111212
  2. VINCRISTINE SULFATE [Concomitant]
     Dosage: INJECTION
     Route: 042
     Dates: start: 20111212, end: 20111219
  3. SPRYCEL [Suspect]
     Indication: ACUTE LYMPHOCYTIC LEUKAEMIA
     Route: 048
     Dates: start: 20111219, end: 20111222
  4. DAUNORUBICIN HCL [Concomitant]
     Dosage: IV DROP INJECTION
     Route: 042
     Dates: start: 20111212, end: 20111214
  5. PREDNISOLONE [Concomitant]
     Dosage: TABS
     Route: 048
     Dates: start: 20111212, end: 20111222

REACTIONS (1)
  - MUSCLE TWITCHING [None]
